FAERS Safety Report 6722280-X (Version None)
Quarter: 2010Q2

REPORT INFORMATION
  Report Type: 
  Country: None (occurrence: None)
  Receive Date: 20100512
  Receipt Date: 20100505
  Transmission Date: 20101027
  Serious: Yes (Other)
  Sender: FDA-Public Use
  Company Number: US-GENENTECH-294150

PATIENT
  Sex: Female
  Weight: 80 kg

DRUGS (21)
  1. XOLAIR [Suspect]
     Indication: ASTHMA
     Dosage: 150 MG, Q2W
     Route: 058
     Dates: start: 20090820
  2. ADVAIR DISKUS 100/50 [Concomitant]
     Indication: DRUG USE FOR UNKNOWN INDICATION
  3. COMBIVENT [Concomitant]
     Indication: DRUG USE FOR UNKNOWN INDICATION
  4. SINGULAIR [Concomitant]
     Indication: DRUG USE FOR UNKNOWN INDICATION
  5. VIVELLE-DOT [Concomitant]
     Indication: DRUG USE FOR UNKNOWN INDICATION
  6. VITAMIN B COMPLEX TAB [Concomitant]
     Indication: DRUG USE FOR UNKNOWN INDICATION
  7. CALCIUM [Concomitant]
     Indication: DRUG USE FOR UNKNOWN INDICATION
  8. MULTI-VITAMINS [Concomitant]
     Indication: DRUG USE FOR UNKNOWN INDICATION
  9. OXYCODONE [Concomitant]
     Indication: DRUG USE FOR UNKNOWN INDICATION
  10. TRAMADOL HCL [Concomitant]
     Indication: DRUG USE FOR UNKNOWN INDICATION
  11. IBUPROFEN [Concomitant]
     Indication: DRUG USE FOR UNKNOWN INDICATION
  12. ASPIRIN [Concomitant]
     Indication: DRUG USE FOR UNKNOWN INDICATION
  13. TYLENOL-500 [Concomitant]
     Indication: DRUG USE FOR UNKNOWN INDICATION
  14. CHLORDIAZEPOXIDE [Concomitant]
     Indication: DRUG USE FOR UNKNOWN INDICATION
  15. SIMVASTATIN [Concomitant]
     Indication: DRUG USE FOR UNKNOWN INDICATION
  16. TRAZODONE [Concomitant]
     Indication: DRUG USE FOR UNKNOWN INDICATION
  17. LEVOTHYROXINE SODIUM [Concomitant]
     Indication: DRUG USE FOR UNKNOWN INDICATION
  18. PROVIGIL [Concomitant]
     Indication: DRUG USE FOR UNKNOWN INDICATION
  19. OMEPRAZOLE [Concomitant]
     Indication: DRUG USE FOR UNKNOWN INDICATION
  20. CHLORTHALIDONE [Concomitant]
     Indication: DRUG USE FOR UNKNOWN INDICATION
  21. LEXAPRO [Concomitant]
     Indication: DRUG USE FOR UNKNOWN INDICATION

REACTIONS (3)
  - HEART RATE INCREASED [None]
  - RASH [None]
  - RESPIRATORY RATE INCREASED [None]
